FAERS Safety Report 20098286 (Version 1)
Quarter: 2021Q4

REPORT INFORMATION
  Report Type: Report from Study
  Country: US (occurrence: US)
  Receive Date: 20211122
  Receipt Date: 20211122
  Transmission Date: 20220304
  Serious: Yes (Other)
  Sender: FDA-Public Use
  Company Number: US-KOREA IPSEN Pharma-2021-28838

PATIENT
  Age: 65 Year
  Sex: Male

DRUGS (2)
  1. SOMATULINE DEPOT [Suspect]
     Active Substance: LANREOTIDE ACETATE
     Indication: Small intestine carcinoma
     Dosage: 120 MG/0.5ML
     Route: 058
     Dates: start: 2018
  2. XERMELO [Suspect]
     Active Substance: TELOTRISTAT ETHYL
     Indication: Product used for unknown indication
     Dosage: DOSE NOT REPORTED
     Route: 065

REACTIONS (5)
  - Oral surgery [Recovered/Resolved]
  - Limb operation [Recovered/Resolved]
  - Platelet count decreased [Recovering/Resolving]
  - Alanine aminotransferase increased [Recovering/Resolving]
  - Flushing [Recovering/Resolving]

NARRATIVE: CASE EVENT DATE: 20210101
